FAERS Safety Report 26097927 (Version 1)
Quarter: 2025Q4

REPORT INFORMATION
  Report Type: Spontaneous
  Country: CN (occurrence: CN)
  Receive Date: 20251127
  Receipt Date: 20251127
  Transmission Date: 20260117
  Serious: Yes (Other)
  Sender: AMGEN
  Company Number: CN-AMGEN-CHNSP2025232221

PATIENT

DRUGS (1)
  1. XGEVA [Suspect]
     Active Substance: DENOSUMAB
     Indication: Metastases to bone
     Dosage: 120 MILLIGRAM, Q4WK, FOR 6 CYCLES
     Route: 058

REACTIONS (7)
  - Pathological fracture [Unknown]
  - Spinal cord compression [Unknown]
  - Bone operation [Unknown]
  - Radiotherapy to bone [Unknown]
  - Non-small cell lung cancer [Unknown]
  - Hypercalcaemia [Unknown]
  - Therapy partial responder [Unknown]
